FAERS Safety Report 8447597-2 (Version None)
Quarter: 2012Q2

REPORT INFORMATION
  Report Type: 
  Country: None (occurrence: None)
  Receive Date: 20120619
  Receipt Date: 20120608
  Transmission Date: 20120825
  Serious: Yes (Other)
  Sender: FDA-Public Use
  Company Number: JP-ASTRAZENECA-2012SE36655

PATIENT
  Sex: Male

DRUGS (2)
  1. SEROQUEL [Suspect]
     Dosage: 100 MG DAILY AS DIRECTED
     Route: 048
     Dates: start: 20120501
  2. NESINA [Concomitant]

REACTIONS (2)
  - FALL [None]
  - BLOOD GLUCOSE INCREASED [None]
